FAERS Safety Report 9341533 (Version 3)
Quarter: 2014Q1

REPORT INFORMATION
  Report Type: Spontaneous
  Country: JP (occurrence: JP)
  Receive Date: 20130611
  Receipt Date: 20140123
  Transmission Date: 20141002
  Serious: Yes (Hospitalization)
  Sender: FDA-Public Use
  Company Number: JP-ROCHE-1232620

PATIENT
  Age: 75 Year
  Sex: Male
  Weight: 61 kg

DRUGS (6)
  1. HERCEPTIN [Suspect]
     Indication: GASTRIC CANCER
     Dosage: 8 MG/KG
     Route: 041
     Dates: start: 20130205, end: 20130205
  2. HERCEPTIN [Suspect]
     Indication: GASTRIC CANCER
     Route: 041
     Dates: start: 20130301, end: 20130301
  3. HERCEPTIN [Suspect]
     Indication: GASTRIC CANCER
     Route: 041
     Dates: start: 20130322, end: 20130322
  4. HERCEPTIN [Suspect]
     Indication: GASTRIC CANCER
     Route: 041
     Dates: start: 20130415, end: 20130415
  5. HERCEPTIN [Suspect]
     Indication: GASTRIC CANCER
     Route: 041
     Dates: start: 20130513, end: 20130513
  6. XELODA [Suspect]
     Indication: GASTRIC CANCER
     Dosage: THE SEVENTH ADMINISTERING ([YASUKUSURI) ON THE 14TH
     Route: 048
     Dates: start: 20130205, end: 20130519

REACTIONS (2)
  - Diverticular perforation [Recovering/Resolving]
  - Palmar-plantar erythrodysaesthesia syndrome [Recovered/Resolved]
